FAERS Safety Report 6101957-3 (Version None)
Quarter: 2009Q1

REPORT INFORMATION
  Report Type: 
  Country: None (occurrence: None)
  Receive Date: 20090304
  Receipt Date: 20090220
  Transmission Date: 20090719
  Serious: Yes (Other)
  Sender: FDA-Public Use
  Company Number: US-PFIZER INC-2009150956

PATIENT
  Sex: Male
  Weight: 84.368 kg

DRUGS (5)
  1. CHANTIX [Suspect]
     Dosage: FREQUENCY: EVERY DAY;
     Route: 048
     Dates: end: 20081231
  2. TOPROL-XL [Concomitant]
     Dosage: UNK
  3. LIPITOR [Concomitant]
     Dosage: UNK
  4. LOTREL [Concomitant]
     Dosage: UNK
  5. OPTIVIT [Concomitant]
     Dosage: UNK

REACTIONS (1)
  - RECTAL HAEMORRHAGE [None]
